FAERS Safety Report 25723657 (Version 1)
Quarter: 2025Q3

REPORT INFORMATION
  Report Type: Spontaneous
  Country: CN (occurrence: CN)
  Receive Date: 20250825
  Receipt Date: 20250825
  Transmission Date: 20251020
  Serious: Yes (Hospitalization)
  Sender: MERCK SHARP & DOHME LLC
  Company Number: CN-009507513-2321076

PATIENT
  Age: 65 Year
  Sex: Male

DRUGS (3)
  1. KEYTRUDA [Suspect]
     Active Substance: PEMBROLIZUMAB
     Indication: Lung adenocarcinoma
     Dosage: 200 MG, Q3W (7 CYCLES TOTAL)
     Route: 042
     Dates: start: 20240401, end: 20240930
  2. IVONESCIMAB [Suspect]
     Active Substance: IVONESCIMAB
     Indication: Lung adenocarcinoma
     Dosage: 140 MG, Q3W
     Route: 042
     Dates: start: 20241001, end: 20241031
  3. PEMETREXED [Suspect]
     Active Substance: PEMETREXED
     Indication: Lung adenocarcinoma
     Dosage: Q3W
     Dates: start: 20240401, end: 20240930

REACTIONS (3)
  - Lichenoid keratosis [Recovering/Resolving]
  - Drug resistance [Unknown]
  - Product use issue [Unknown]

NARRATIVE: CASE EVENT DATE: 20240101
